FAERS Safety Report 15251449 (Version 1)
Quarter: 2018Q3

REPORT INFORMATION
  Report Type: Spontaneous
  Country: AU (occurrence: AU)
  Receive Date: 20180807
  Receipt Date: 20180807
  Transmission Date: 20181010
  Serious: Yes (Other)
  Sender: FDA-Public Use
  Company Number: AU-PFIZER INC-2018311283

PATIENT
  Age: 73 Year
  Sex: Male

DRUGS (1)
  1. CELEBREX [Suspect]
     Active Substance: CELECOXIB
     Dosage: 100 MG, 2X/DAY (1 CAPSULE IN THE MORNING AND 1 CAPSULE AT NIGHT)

REACTIONS (2)
  - Penile haemorrhage [Unknown]
  - Blood urine present [Unknown]
